FAERS Safety Report 5848086-1 (Version None)
Quarter: 2008Q3

REPORT INFORMATION
  Report Type: 
  Country: None (occurrence: None)
  Receive Date: 20080814
  Receipt Date: 20080801
  Transmission Date: 20090109
  Serious: Yes (Other)
  Sender: FDA-Public Use
  Company Number: 2008-01290

PATIENT
  Age: 47 Year
  Sex: Male
  Weight: 75 kg

DRUGS (14)
  1. VELCADE [Suspect]
     Indication: MULTIPLE MYELOMA
     Dosage: 2.5 MG, INTRAVENOUS
     Route: 042
     Dates: start: 20080325, end: 20080404
  2. CYCLOPHOSPHAMIDE [Suspect]
     Indication: MULTIPLE MYELOMA
     Dosage: 1700 MG, INTRAVENOUS
     Route: 042
     Dates: start: 20080325, end: 20080325
  3. DEXAMETHASONE TAB [Suspect]
     Indication: MULTIPLE MYELOMA
     Dosage: 40 MG, INTRAVENOUS 40 MG, ORAL
     Route: 042
     Dates: start: 20080325, end: 20080404
  4. DEXAMETHASONE TAB [Suspect]
     Indication: MULTIPLE MYELOMA
     Dosage: 40 MG, INTRAVENOUS 40 MG, ORAL
     Route: 042
     Dates: start: 20080326, end: 20080405
  5. MORPHINE [Concomitant]
  6. NORAMINSULFAN [Concomitant]
  7. SIMVASTATIN [Concomitant]
  8. NEBIVOLOL HCL [Concomitant]
  9. OMEPRAZOLE [Concomitant]
  10. ASPIRIN [Concomitant]
  11. FENTANYL-100 [Concomitant]
  12. ALTINSULIN [Concomitant]
  13. MACROGOL (MACROGOL) [Concomitant]
  14. RED BLOOD CELLS [Concomitant]

REACTIONS (1)
  - TINNITUS [None]
